FAERS Safety Report 6492259-4 (Version None)
Quarter: 2009Q4

REPORT INFORMATION
  Report Type: 
  Country: None (occurrence: None)
  Receive Date: 20091214
  Receipt Date: 20091201
  Transmission Date: 20100525
  Serious: Yes (Disabling, Congenital Anomaly)
  Sender: FDA-Public Use
  Company Number: PHHY2009GB54070

PATIENT
  Sex: Male

DRUGS (2)
  1. TEGRETOL [Suspect]
     Dosage: 1.2 G, UNK
     Route: 064
  2. EPILIM [Suspect]
     Dosage: 2.4 G, UNK
     Route: 064

REACTIONS (5)
  - ANTISOCIAL BEHAVIOUR [None]
  - DEVELOPMENTAL DELAY [None]
  - DRUG EXPOSURE DURING PREGNANCY [None]
  - INDIFFERENCE [None]
  - SPEECH DISORDER DEVELOPMENTAL [None]
